FAERS Safety Report 8940973 (Version 1)
Quarter: 2012Q4

REPORT INFORMATION
  Report Type: 
  Country: US (occurrence: US)
  Receive Date: 20121203
  Receipt Date: 20121203
  Transmission Date: 20130627
  Serious: No
  Sender: FDA-Public Use
  Company Number: US-B.I. PHARMACEUTICALS,INC./RIDGEFIELD-2012-BI-01656BP

PATIENT
  Sex: Female

DRUGS (5)
  1. SPIRIVA [Suspect]
     Indication: PNEUMONIA
     Dosage: 18 mcg
     Route: 055
     Dates: start: 20121121, end: 20121121
  2. AMOXICILLIN [Concomitant]
  3. FUROSEMIDE [Concomitant]
  4. PREDNISONE [Concomitant]
  5. KLOR CON [Concomitant]

REACTIONS (1)
  - Loss of consciousness [Recovered/Resolved]
